FAERS Safety Report 4405059-3 (Version None)
Quarter: 2004Q2

REPORT INFORMATION
  Report Type: 
  Country: None (occurrence: None)
  Receive Date: 20040621
  Receipt Date: 20040503
  Transmission Date: 20050107
  Serious: No
  Sender: FDA-Public Use
  Company Number: A-US2004-06027

PATIENT
  Age: 64 Year
  Sex: Female

DRUGS (9)
  1. TRACLEER [Suspect]
     Indication: PULMONARY HYPERTENSION
     Dosage: 62.5 MG, BID, ORAL
     Route: 048
  2. NAPROXEN [Concomitant]
  3. INDERAL [Concomitant]
  4. ACETAMINOPHEN [Concomitant]
  5. VERAPAMIL [Concomitant]
  6. ACIPHEX [Concomitant]
  7. LEVOXYL [Concomitant]
  8. PREMARIN [Concomitant]
  9. TRIAMCINOLONE [Concomitant]

REACTIONS (2)
  - DIZZINESS [None]
  - HEADACHE [None]
